FAERS Safety Report 20316249 (Version 1)
Quarter: 2022Q1

REPORT INFORMATION
  Report Type: Other
  Country: TR (occurrence: None)
  Receive Date: 20220110
  Receipt Date: 20220110
  Transmission Date: 20220423
  Serious: Yes (Other)
  Sender: FDA-Public Use
  Company Number: TR-ROCHE-2996179

PATIENT

DRUGS (5)
  1. RITUXIMAB [Suspect]
     Active Substance: RITUXIMAB
     Indication: Pemphigus
     Route: 065
  2. DAPSONE [Suspect]
     Active Substance: DAPSONE
     Indication: Pemphigus
     Route: 065
  3. AZATHIOPRINE [Suspect]
     Active Substance: AZATHIOPRINE
     Indication: Pemphigus
     Route: 065
  4. MYCOPHENOLIC ACID [Suspect]
     Active Substance: MYCOPHENOLIC ACID
     Indication: Pemphigus
     Route: 065
  5. HUMAN IMMUNOGLOBULIN G [Suspect]
     Active Substance: HUMAN IMMUNOGLOBULIN G
     Indication: Pemphigus
     Route: 065

REACTIONS (12)
  - Diabetes mellitus [Unknown]
  - Hypertension [Unknown]
  - Osteoporosis [Unknown]
  - Cataract [Unknown]
  - Acute kidney injury [Unknown]
  - Pneumonia [Unknown]
  - Abscess [Unknown]
  - Methaemoglobinaemia [Unknown]
  - Anaemia [Unknown]
  - Pancytopenia [Unknown]
  - Respiratory tract infection [Unknown]
  - Infection [Unknown]
